FAERS Safety Report 8373228-6 (Version None)
Quarter: 2012Q2

REPORT INFORMATION
  Report Type: 
  Country: None (occurrence: None)
  Receive Date: 20120521
  Receipt Date: 20120515
  Transmission Date: 20120825
  Serious: Yes (Hospitalization)
  Sender: FDA-Public Use
  Company Number: US-BAYER-2012-020453

PATIENT
  Age: 46 Year
  Sex: Female
  Weight: 86 kg

DRUGS (7)
  1. AMOXICILLIN [Concomitant]
     Dosage: UNK
     Dates: start: 20040124
  2. ADVAIR DISKUS 100/50 [Concomitant]
     Dosage: UNK
     Dates: start: 20040328
  3. NEXIUM [Concomitant]
     Indication: GASTROOESOPHAGEAL REFLUX DISEASE
     Dosage: UNK
     Dates: start: 20000101
  4. MULTI-VITAMIN [Concomitant]
     Indication: GENERAL PHYSICAL HEALTH DETERIORATION
     Dosage: UNK
     Dates: start: 20040301, end: 20040401
  5. FLONASE [Concomitant]
  6. YASMIN [Suspect]
     Dosage: UNK
     Dates: start: 20031201, end: 20040419
  7. PAXIL [Concomitant]
     Indication: DEPRESSION
     Dosage: UNK
     Dates: start: 20040201, end: 20040401

REACTIONS (2)
  - CEREBROVASCULAR ACCIDENT [None]
  - HEMIPLEGIA [None]
